FAERS Safety Report 23793648 (Version 1)
Quarter: 2024Q2

REPORT INFORMATION
  Report Type: Spontaneous
  Country: US (occurrence: None)
  Receive Date: 20240426
  Receipt Date: 20240426
  Transmission Date: 20240716
  Serious: No
  Sender: FDA-Public Use
  Company Number: None

PATIENT
  Age: 77 Year
  Sex: Female

DRUGS (14)
  1. ADEMPAS [Suspect]
     Active Substance: RIOCIGUAT
     Indication: Pulmonary hypertension
     Dosage: FREQUENCY : 3 TIMES A DAY;?
     Route: 048
     Dates: start: 20180309
  2. FAMOTIDINE [Concomitant]
     Active Substance: FAMOTIDINE
  3. LOPERAMIDE [Concomitant]
     Active Substance: LOPERAMIDE
  4. nystatin top ceam [Concomitant]
  5. PATADAY [Concomitant]
  6. opht drop [Concomitant]
  7. ATORVASTATIN [Concomitant]
     Active Substance: ATORVASTATIN
  8. PANTOPRAZOLE [Concomitant]
     Active Substance: PANTOPRAZOLE
  9. METFORMIN [Concomitant]
     Active Substance: METFORMIN HYDROCHLORIDE
  10. DABIGATRAN [Concomitant]
     Active Substance: DABIGATRAN
  11. LEVOTHYROXINE [Concomitant]
     Active Substance: LEVOTHYROXINE\LEVOTHYROXINE SODIUM
  12. LOSARTAN [Concomitant]
     Active Substance: LOSARTAN
  13. FUROSEMIDE [Concomitant]
     Active Substance: FUROSEMIDE
  14. ASCORBIC ACID\IRON [Concomitant]
     Active Substance: ASCORBIC ACID\IRON

REACTIONS (3)
  - Fall [None]
  - Head injury [None]
  - Joint injury [None]

NARRATIVE: CASE EVENT DATE: 20240331
